FAERS Safety Report 11278806 (Version 4)
Quarter: 2015Q3

REPORT INFORMATION
  Report Type: Report from Study
  Country: RU (occurrence: RU)
  Receive Date: 20150717
  Receipt Date: 20150929
  Transmission Date: 20151125
  Serious: Yes (Death, Hospitalization)
  Sender: FDA-Public Use
  Company Number: US-SA-2015SA103456

PATIENT
  Sex: Female

DRUGS (13)
  1. BISOPROLOL [Concomitant]
     Active Substance: BISOPROLOL
     Indication: HYPERTENSION
     Dosage: DOSE: 2.5 UNITS NOT PROVIDED
     Route: 048
     Dates: start: 20060208
  2. RECOMBINANT HUMAN INSULIN [Suspect]
     Active Substance: INSULIN HUMAN
     Indication: TYPE 2 DIABETES MELLITUS
     Dosage: DOSE:60 UNIT(S)
     Dates: start: 20070328, end: 20070726
  3. RECOMBINANT HUMAN INSULIN [Suspect]
     Active Substance: INSULIN HUMAN
     Indication: TYPE 2 DIABETES MELLITUS
     Dosage: DOSE:90 UNIT(S)
     Dates: start: 20070727, end: 20080302
  4. ACETYLSALICYLIC ACID [Concomitant]
     Active Substance: ASPIRIN
     Indication: CORONARY ARTERY DISEASE
     Dosage: DOSE: 100 UNITS NOT PROVIDED
     Route: 048
     Dates: start: 20060106
  5. RECOMBINANT HUMAN INSULIN [Suspect]
     Active Substance: INSULIN HUMAN
     Indication: TYPE 2 DIABETES MELLITUS
     Dosage: DOSE:60 UNIT(S)
     Dates: start: 20061226, end: 20070327
  6. RECOMBINANT HUMAN INSULIN [Suspect]
     Active Substance: INSULIN HUMAN
     Indication: TYPE 2 DIABETES MELLITUS
     Dosage: DOSE:15 UNIT(S)
     Dates: start: 20060421, end: 20060709
  7. RECOMBINANT HUMAN INSULIN [Suspect]
     Active Substance: INSULIN HUMAN
     Indication: TYPE 2 DIABETES MELLITUS
     Dosage: DOSE:45 UNIT(S)
     Dates: start: 20061010, end: 20061225
  8. INSULIN GLARGINE [Concomitant]
     Active Substance: INSULIN GLARGINE
     Indication: TYPE 2 DIABETES MELLITUS
     Dates: end: 2008
  9. METFORMIN HYDROCHLORIDE. [Concomitant]
     Active Substance: METFORMIN HYDROCHLORIDE
     Route: 048
     Dates: start: 20080403, end: 20080529
  10. RECOMBINANT HUMAN INSULIN [Suspect]
     Active Substance: INSULIN HUMAN
     Indication: TYPE 2 DIABETES MELLITUS
     Dosage: DOSE:30 UNIT(S)
     Dates: start: 20060710, end: 20061009
  11. MOLSIDOMINE [Concomitant]
     Active Substance: MOLSIDOMINE
     Indication: CORONARY ARTERY DISEASE
     Dosage: DOSE: 2 UNITS NOT PROVIDED
     Route: 048
     Dates: start: 20060331
  12. TAURINE [Concomitant]
     Active Substance: TAURINE
     Indication: CATARACT
     Dosage: DOSE: 2 UNITS NOT PROVIDED
     Dates: start: 20060209
  13. LISINOPRIL. [Concomitant]
     Active Substance: LISINOPRIL
     Indication: HYPERTENSION
     Dosage: DOSE: 15 UNITS NOT PROVIDED
     Route: 048
     Dates: start: 20060331

REACTIONS (2)
  - Pleurisy [Not Recovered/Not Resolved]
  - Lung neoplasm malignant [Fatal]

NARRATIVE: CASE EVENT DATE: 20120110
